FAERS Safety Report 6521501-6 (Version None)
Quarter: 2009Q4

REPORT INFORMATION
  Report Type: 
  Country: None (occurrence: None)
  Receive Date: 20091230
  Receipt Date: 20091222
  Transmission Date: 20100525
  Serious: Yes (Hospitalization, Disabling)
  Sender: FDA-Public Use
  Company Number: JP-BAYER-200943754GPV

PATIENT
  Age: 36 Year
  Sex: Female

DRUGS (2)
  1. INTERFERON BETA-1B [Suspect]
     Indication: MULTIPLE SCLEROSIS
  2. CLARITHROMYCIN [Concomitant]
     Indication: PNEUMONIA MYCOPLASMAL

REACTIONS (4)
  - ACUTE DISSEMINATED ENCEPHALOMYELITIS [None]
  - DYSARTHRIA [None]
  - MUSCULAR WEAKNESS [None]
  - URINARY RETENTION [None]
